FAERS Safety Report 14765869 (Version 1)
Quarter: 2018Q2

REPORT INFORMATION
  Report Type: Spontaneous
  Country: DE (occurrence: DE)
  Receive Date: 20180416
  Receipt Date: 20180416
  Transmission Date: 20180711
  Serious: Yes (Other)
  Sender: FDA-Public Use
  Company Number: DE-ALLERGAN-1820838US

PATIENT
  Age: 50 Year
  Sex: Female
  Weight: 45 kg

DRUGS (2)
  1. OXYBUTYNIN PCH - BP [Suspect]
     Active Substance: OXYBUTYNIN
     Indication: PRODUCT USED FOR UNKNOWN INDICATION
     Dosage: TRANSDERMAL PATCH
     Route: 062
  2. ENALAPRIL HL [Concomitant]
     Indication: HYPERTENSION
     Route: 065

REACTIONS (8)
  - Muscular weakness [Unknown]
  - Hypoaesthesia [Unknown]
  - Paraesthesia [Unknown]
  - Off label use [Unknown]
  - Wrong technique in product usage process [Unknown]
  - Dizziness [Unknown]
  - Circulatory collapse [Unknown]
  - Panic reaction [Unknown]
